FAERS Safety Report 8031352-1 (Version None)
Quarter: 2012Q1

REPORT INFORMATION
  Report Type: 
  Country: None (occurrence: None)
  Receive Date: 20120109
  Receipt Date: 20120102
  Transmission Date: 20120608
  Serious: Yes (Death)
  Sender: FDA-Public Use
  Company Number: US-BAYER-2012-000983

PATIENT
  Age: 17 Year
  Sex: Female

DRUGS (18)
  1. METHYLPHENIDATE [Suspect]
  2. LAXATIVES [Suspect]
  3. DEXTROMETHORPHAN (ROMILAR, XINLI) +/- GUAIFENESIN [Suspect]
  4. PARACETAMOL + PSEUDOEPHEDRINE [Suspect]
  5. ETHANOL [Suspect]
  6. FLUOXETINE [Suspect]
  7. HALOPERIDOL [Suspect]
  8. MAGNESIUM CHLORIDE [Suspect]
  9. PHENOL [Suspect]
  10. NAPROXEN SODIUM [Suspect]
  11. LOPERAMIDE [Suspect]
  12. CITALOPRAM [Suspect]
  13. GUAIFENESIN [Suspect]
  14. ACETAMINOPHEN AND HYDROCODONE BITARTRATE [Suspect]
  15. HYOSCYAMINE [Suspect]
  16. MONTELUKAST [Suspect]
  17. IBUPROFEN [Suspect]
  18. ROSUVASTATIN [Suspect]

REACTIONS (1)
  - TOXICITY TO VARIOUS AGENTS [None]
